FAERS Safety Report 5867400-4 (Version None)
Quarter: 2008Q3

REPORT INFORMATION
  Report Type: 
  Country: None (occurrence: None)
  Receive Date: 20080829
  Receipt Date: 20080829
  Transmission Date: 20090109
  Serious: Yes (Hospitalization)
  Sender: FDA-Public Use
  Company Number: None

PATIENT
  Age: 84 Year
  Sex: Male

DRUGS (2)
  1. FUROSEMIDE [Suspect]
     Indication: HYPERTENSION
     Dosage: 20 MG EVERY DAY PO
     Route: 048
     Dates: start: 20070815, end: 20080818
  2. FUROSEMIDE [Suspect]
     Indication: OEDEMA
     Dosage: 20 MG EVERY DAY PO
     Route: 048
     Dates: start: 20070815, end: 20080818

REACTIONS (1)
  - RASH [None]
